FAERS Safety Report 5209032-7 (Version None)
Quarter: 2007Q1

REPORT INFORMATION
  Report Type: 
  Country: None (occurrence: None)
  Receive Date: 20070116
  Receipt Date: 20070108
  Transmission Date: 20070707
  Serious: Yes (Hospitalization)
  Sender: FDA-Public Use
  Company Number: GB-MERCK-0701GBR00054

PATIENT
  Age: 8 Month
  Sex: Male

DRUGS (1)
  1. TIMOPTIC [Suspect]
     Route: 047

REACTIONS (4)
  - BRADYCARDIA [None]
  - HYPOTENSION [None]
  - LETHARGY [None]
  - RESPIRATORY RATE DECREASED [None]
